FAERS Safety Report 6181448-4 (Version None)
Quarter: 2009Q2

REPORT INFORMATION
  Report Type: 
  Country: None (occurrence: None)
  Receive Date: 20090505
  Receipt Date: 20090505
  Transmission Date: 20091009
  Serious: Yes (Other)
  Sender: FDA-Public Use
  Company Number: None

PATIENT
  Age: 20 Year
  Sex: Male
  Weight: 90.7194 kg

DRUGS (1)
  1. PAROXETINE HCL [Suspect]
     Indication: GENERALISED ANXIETY DISORDER
     Dosage: 20MG  DAILY PO
     Route: 048
     Dates: start: 20070701, end: 20080930

REACTIONS (2)
  - ANORGASMIA [None]
  - PREMATURE EJACULATION [None]
